FAERS Safety Report 5640824-6 (Version None)
Quarter: 2008Q1

REPORT INFORMATION
  Report Type: 
  Country: None (occurrence: None)
  Receive Date: 20080225
  Receipt Date: 20080219
  Transmission Date: 20080703
  Serious: Yes (Hospitalization)
  Sender: FDA-Public Use
  Company Number: A0710798A

PATIENT
  Sex: Female
  Weight: 3.1752 kg

DRUGS (3)
  1. LAMICTAL [Suspect]
     Indication: EPILEPSY
     Dosage: 1600 MG / PER DAY / TRANSPLACENTARY
     Route: 064
  2. VITAMIN K [Concomitant]
  3. FOLIC ACID [Concomitant]

REACTIONS (4)
  - DRUG EXPOSURE DURING PREGNANCY [None]
  - JAUNDICE NEONATAL [None]
  - PREGNANCY [None]
  - WHITE BLOOD CELL COUNT DECREASED [None]
